FAERS Safety Report 5717182-1 (Version None)
Quarter: 2008Q2

REPORT INFORMATION
  Report Type: 
  Country: None (occurrence: None)
  Receive Date: 20080424
  Receipt Date: 20080414
  Transmission Date: 20081010
  Serious: Yes (Other)
  Sender: FDA-Public Use
  Company Number: DE-PFIZER INC-2008033333

PATIENT
  Sex: Female

DRUGS (3)
  1. AZITHROMYCIN [Suspect]
     Indication: BRONCHITIS
     Route: 048
     Dates: start: 20080111, end: 20080117
  2. DETRUSITOL SR [Suspect]
     Indication: URGE INCONTINENCE
     Route: 048
  3. DETRUSITOL SR [Suspect]
     Indication: MULTIPLE SCLEROSIS

REACTIONS (1)
  - LEUKOPENIA [None]
